FAERS Safety Report 17347855 (Version 4)
Quarter: 2020Q1

REPORT INFORMATION
  Report Type: Report from Study
  Country: KR (occurrence: KR)
  Receive Date: 20200130
  Receipt Date: 20200330
  Transmission Date: 20200409
  Serious: Yes (Hospitalization)
  Sender: FDA-Public Use
  Company Number: KR-EISAI MEDICAL RESEARCH-EC-2020-068911

PATIENT
  Age: 3 Year
  Sex: Male
  Weight: 17.6 kg

DRUGS (9)
  1. SENTIL [Concomitant]
     Active Substance: CLOBAZAM
  2. ORFIL [Concomitant]
     Active Substance: VALPROATE SODIUM
  3. PERAMPANEL [Suspect]
     Active Substance: PERAMPANEL
     Indication: LENNOX-GASTAUT SYNDROME
     Route: 048
     Dates: start: 20191213, end: 20191219
  4. PERAMPANEL [Suspect]
     Active Substance: PERAMPANEL
     Route: 048
     Dates: start: 20200122
  5. TOPAMAX [Concomitant]
     Active Substance: TOPIRAMATE
  6. PERAMPANEL [Suspect]
     Active Substance: PERAMPANEL
     Route: 048
     Dates: start: 20191220, end: 20191226
  7. PERAMPANEL [Suspect]
     Active Substance: PERAMPANEL
     Route: 048
     Dates: start: 20200111, end: 20200121
  8. KEPPRA [Concomitant]
     Active Substance: LEVETIRACETAM
  9. PERAMPANEL [Suspect]
     Active Substance: PERAMPANEL
     Route: 048
     Dates: start: 20191227, end: 20200110

REACTIONS (1)
  - Decreased appetite [Recovered/Resolved]

NARRATIVE: CASE EVENT DATE: 20200122
